FAERS Safety Report 5170639-7 (Version None)
Quarter: 2006Q4

REPORT INFORMATION
  Report Type: 
  Country: None (occurrence: None)
  Receive Date: 20061205
  Receipt Date: 20061120
  Transmission Date: 20070319
  Serious: Yes (Hospitalization, Other)
  Sender: FDA-Public Use
  Company Number: 2006144310

PATIENT
  Age: 62 Year
  Sex: Male
  Weight: 68 kg

DRUGS (10)
  1. SUTENT [Suspect]
  2. DICLOFENAC SODIUM [Concomitant]
  3. ACETAMINOPHEN [Concomitant]
  4. OXYCONTIN [Concomitant]
  5. GABAPANTIN [Concomitant]
  6. PREDNISOLONE [Concomitant]
  7. OMEPRAZOLE [Concomitant]
  8. LACTULOSE [Concomitant]
  9. AMITRIPTYLINE HCL [Concomitant]
  10. METOCLOPROMIDE [Concomitant]

REACTIONS (6)
  - BLOOD CULTURE POSITIVE [None]
  - DYSPEPSIA [None]
  - ESCHERICHIA INFECTION [None]
  - LIVER FUNCTION TEST ABNORMAL [None]
  - MALAISE [None]
  - NAUSEA [None]
